FAERS Safety Report 18391526 (Version 1)
Quarter: 2020Q4

REPORT INFORMATION
  Report Type: Spontaneous
  Country: US (occurrence: US)
  Receive Date: 20201016
  Receipt Date: 20201016
  Transmission Date: 20210114
  Serious: Yes (Other)
  Sender: FDA-Public Use
  Company Number: US-MYLANLABS-2020M1086456

PATIENT
  Age: 35 Year
  Sex: Female

DRUGS (7)
  1. BUPRENORPHINE. [Suspect]
     Active Substance: BUPRENORPHINE
     Dosage: SHE STABILISED ON 6 MG DAILY
     Route: 060
  2. SUMATRIPTAN. [Concomitant]
     Active Substance: SUMATRIPTAN
     Indication: MIGRAINE
     Dosage: RE-INITIATED IN THE IMMEDIATE POSTPARTUM PERIOD
     Route: 065
  3. OXYCODONE [Concomitant]
     Active Substance: OXYCODONE
     Dosage: DOSE ESCALATED DURING THE PREGNANCY UP TO 30 MG OF OXYCODONE DAILY (45 MME) AT DELIVERY
     Route: 065
  4. BUPRENORPHINE. [Suspect]
     Active Substance: BUPRENORPHINE
     Indication: DRUG WITHDRAWAL SYNDROME
     Dosage: INITIAL DOSE NOT STATED
     Route: 060
  5. BUPRENORPHINE. [Suspect]
     Active Substance: BUPRENORPHINE
     Dosage: 2 MILLIGRAM, QD;OVER THE NEXT 14 MONTHS..
     Route: 060
  6. BUPRENORPHINE. [Suspect]
     Active Substance: BUPRENORPHINE
     Indication: DRUG WITHDRAWAL SYNDROME
     Dosage: SHE RECEIVED A SINGLE OFF-LABEL INJECTION TO FACILITATE AN EVEN, GRADUAL TAPER.
     Route: 058
  7. OXYCODONE [Concomitant]
     Active Substance: OXYCODONE
     Indication: MIGRAINE
     Route: 065

REACTIONS (5)
  - Headache [Recovered/Resolved]
  - Nausea [Recovered/Resolved]
  - Withdrawal syndrome [Recovered/Resolved]
  - Dysphoria [Recovered/Resolved]
  - Off label use [Unknown]
